FAERS Safety Report 19393148 (Version 1)
Quarter: 2021Q2

REPORT INFORMATION
  Report Type: Spontaneous
  Country: US (occurrence: US)
  Receive Date: 20210608
  Receipt Date: 20210608
  Transmission Date: 20210717
  Serious: Yes (Other)
  Sender: FDA-Public Use
  Company Number: None

PATIENT
  Age: 22 Year
  Sex: Female
  Weight: 82.6 kg

DRUGS (1)
  1. CASIRIVIMAB (REGN10933) 600 MG, IMDEVIMAB (REGN10987) 600 MG [Suspect]
     Active Substance: CASIRIVIMAB\IMDEVIMAB
     Indication: COVID-19
     Route: 041
     Dates: start: 20210607, end: 20210607

REACTIONS (3)
  - Migraine [None]
  - Photopsia [None]
  - Abdominal pain upper [None]

NARRATIVE: CASE EVENT DATE: 20210607
